FAERS Safety Report 13551409 (Version 2)
Quarter: 2017Q2

REPORT INFORMATION
  Report Type: Spontaneous
  Country: US (occurrence: US)
  Receive Date: 20170516
  Receipt Date: 20170614
  Transmission Date: 20170830
  Serious: Yes (Hospitalization, Other)
  Sender: FDA-Public Use
  Company Number: US-BAYER-2017-092095

PATIENT
  Age: 29 Year
  Sex: Female
  Weight: 72.83 kg

DRUGS (9)
  1. KYLEENA [Suspect]
     Active Substance: LEVONORGESTREL
     Indication: CONTRACEPTION
     Dosage: 17.5 MCG/24HR, CONT
     Route: 015
     Dates: start: 20170413, end: 20170416
  2. KYLEENA [Suspect]
     Active Substance: LEVONORGESTREL
     Indication: MENORRHAGIA
  3. MULTIVITAMIN [Concomitant]
     Active Substance: VITAMINS
     Dosage: 2 DF, QD
     Route: 048
     Dates: start: 20170320
  4. KYLEENA [Suspect]
     Active Substance: LEVONORGESTREL
     Indication: OVARIAN DISORDER
  5. CLOBETASOL PROPIONATE. [Concomitant]
     Active Substance: CLOBETASOL PROPIONATE
     Dosage: UNK UNK, BID
     Route: 061
     Dates: start: 20170413
  6. ACETAMINOPHEN. [Concomitant]
     Active Substance: ACETAMINOPHEN
  7. LACTOBAC [Concomitant]
     Active Substance: LACTOBACILLUS ACIDOPHILUS
     Dosage: 1 DF, TID
     Route: 048
  8. VALTREX [Concomitant]
     Active Substance: VALACYCLOVIR HYDROCHLORIDE
     Dosage: 1 DF, BID
     Route: 048
     Dates: start: 20160810
  9. MUPIROCIN. [Concomitant]
     Active Substance: MUPIROCIN
     Dosage: UNK UNK, TID
     Route: 061
     Dates: start: 20170413

REACTIONS (13)
  - Bacterial vaginosis [Recovering/Resolving]
  - Feeling abnormal [Recovering/Resolving]
  - Loss of consciousness [Recovering/Resolving]
  - Pyrexia [Recovering/Resolving]
  - Nausea [Recovering/Resolving]
  - Streptococcal urinary tract infection [Recovering/Resolving]
  - Vaginal discharge [Recovering/Resolving]
  - Pelvic inflammatory disease [Recovering/Resolving]
  - Abdominal pain lower [Recovering/Resolving]
  - Tachycardia [Recovering/Resolving]
  - Fatigue [Recovering/Resolving]
  - Hypotension [Recovering/Resolving]
  - Diarrhoea [None]

NARRATIVE: CASE EVENT DATE: 2017
